FAERS Safety Report 5344464-8 (Version None)
Quarter: 2007Q2

REPORT INFORMATION
  Report Type: 
  Country: None (occurrence: None)
  Receive Date: 20070604
  Receipt Date: 20070524
  Transmission Date: 20071010
  Serious: Yes (Other)
  Sender: FDA-Public Use
  Company Number: JP-PFIZER INC-2007019373

PATIENT
  Sex: Male
  Weight: 83.2 kg

DRUGS (1)
  1. NORVASC [Suspect]
     Indication: HYPERTENSION
     Route: 048
     Dates: start: 20070219, end: 20070220

REACTIONS (4)
  - DIZZINESS [None]
  - EYELID FUNCTION DISORDER [None]
  - HOT FLUSH [None]
  - JUDGEMENT IMPAIRED [None]
